FAERS Safety Report 7606876-9 (Version None)
Quarter: 2011Q3

REPORT INFORMATION
  Report Type: 
  Country: None (occurrence: None)
  Receive Date: 20110713
  Receipt Date: 20110705
  Transmission Date: 20111222
  Serious: Yes (Hospitalization)
  Sender: FDA-Public Use
  Company Number: JP-GLAXOSMITHKLINE-B0728785A

PATIENT
  Sex: Male

DRUGS (2)
  1. LAMICTAL [Suspect]
     Indication: EPILEPSY
     Dosage: 25MG TWICE PER DAY
     Route: 048
     Dates: start: 20110525, end: 20110619
  2. VALPROATE SODIUM [Concomitant]
     Dosage: 800MG PER DAY
     Route: 048

REACTIONS (4)
  - GRAND MAL CONVULSION [None]
  - PYREXIA [None]
  - DRUG ERUPTION [None]
  - RASH [None]
